FAERS Safety Report 13389570 (Version 4)
Quarter: 2017Q2

REPORT INFORMATION
  Report Type: Report from Study
  Country: US (occurrence: US)
  Receive Date: 20170330
  Receipt Date: 20170524
  Transmission Date: 20170830
  Serious: Yes (Other)
  Sender: FDA-Public Use
  Company Number: US-JNJFOC-20170221638

PATIENT
  Age: 69 Year
  Sex: Female

DRUGS (1)
  1. IMBRUVICA [Suspect]
     Active Substance: IBRUTINIB
     Indication: CHRONIC LYMPHOCYTIC LEUKAEMIA
     Route: 048
     Dates: start: 20170215

REACTIONS (14)
  - Muscle spasms [Not Recovered/Not Resolved]
  - Nodule [Recovered/Resolved]
  - Conjunctivitis [Not Recovered/Not Resolved]
  - Traumatic haematoma [Not Recovered/Not Resolved]
  - Contusion [Recovered/Resolved]
  - Dizziness [Not Recovered/Not Resolved]
  - Night sweats [Recovered/Resolved]
  - Muscular weakness [Not Recovered/Not Resolved]
  - Atrial fibrillation [Recovered/Resolved]
  - Arthralgia [Not Recovered/Not Resolved]
  - Dyspepsia [Not Recovered/Not Resolved]
  - Haemoglobin decreased [Recovering/Resolving]
  - Angina bullosa haemorrhagica [Recovered/Resolved]
  - Diarrhoea [Not Recovered/Not Resolved]

NARRATIVE: CASE EVENT DATE: 2017
